FAERS Safety Report 19082450 (Version 1)
Quarter: 2021Q2

REPORT INFORMATION
  Report Type: Spontaneous
  Country: JP (occurrence: JP)
  Receive Date: 20210401
  Receipt Date: 20210401
  Transmission Date: 20210717
  Serious: Yes (Life-Threatening, Other)
  Sender: FDA-Public Use
  Company Number: JP-ELI_LILLY_AND_COMPANY-JP202102011995

PATIENT
  Age: 52 Year
  Sex: Male

DRUGS (1)
  1. HUMULIN R [Suspect]
     Active Substance: INSULIN HUMAN
     Indication: FULMINANT TYPE 1 DIABETES MELLITUS
     Route: 041

REACTIONS (2)
  - Cardiogenic shock [Recovered/Resolved]
  - Lipid metabolism disorder [Unknown]

NARRATIVE: CASE EVENT DATE: 2017
